FAERS Safety Report 10409468 (Version 1)
Quarter: 2014Q3

REPORT INFORMATION
  Report Type: Spontaneous
  Country: US (occurrence: US)
  Receive Date: 20140826
  Receipt Date: 20140826
  Transmission Date: 20150326
  Serious: No
  Sender: FDA-Public Use
  Company Number: US-BAUSCH-SYM-2014-17791

PATIENT
  Age: 70 Year
  Sex: Female

DRUGS (1)
  1. ACYCLOVIR 5% OINTMENT [Suspect]
     Active Substance: ACYCLOVIR
     Indication: ORAL HERPES
     Dosage: TWICE DAILY FOR 3 DAYS
     Route: 061
     Dates: start: 20140122, end: 20140125

REACTIONS (1)
  - Drug ineffective [Unknown]

NARRATIVE: CASE EVENT DATE: 20140122
